FAERS Safety Report 4287847-X (Version None)
Quarter: 2004Q1

REPORT INFORMATION
  Report Type: 
  Country: None (occurrence: None)
  Receive Date: 20040209
  Receipt Date: 20031009
  Transmission Date: 20041129
  Serious: No
  Sender: FDA-Public Use
  Company Number: US-GLAXOSMITHKLINE-A0429656A

PATIENT
  Age: 48 Year
  Sex: Male

DRUGS (3)
  1. PAXIL [Suspect]
     Dosage: 25MG PER DAY
     Route: 048
     Dates: start: 20030901
  2. ATIVAN [Concomitant]
  3. CHOLESTEROL REDUCING AGENT [Concomitant]

REACTIONS (1)
  - BLISTER [None]
